FAERS Safety Report 23047715 (Version 1)
Quarter: 2023Q4

REPORT INFORMATION
  Report Type: Spontaneous
  Country: IT (occurrence: IT)
  Receive Date: 20231010
  Receipt Date: 20231010
  Transmission Date: 20240109
  Serious: Yes (Life-Threatening, Hospitalization)
  Sender: FDA-Public Use
  Company Number: None

PATIENT
  Age: 33 Year
  Sex: Female

DRUGS (2)
  1. CLONAZEPAM [Suspect]
     Active Substance: CLONAZEPAM
     Indication: Suicide attempt
     Dosage: TAKES 1 BOTTLE OF RIVOLTRIL DAILY FOR 5 DAYS.?DAILY DOSE: 50 MILLILITRE
     Route: 048
     Dates: start: 20230802, end: 20230806
  2. CLONAZEPAM [Suspect]
     Active Substance: CLONAZEPAM
     Indication: Drug abuse
     Dosage: TAKES 1 BOTTLE OF RIVOLTRIL DAILY FOR 5 DAYS.?DAILY DOSE: 50 MILLILITRE
     Route: 048
     Dates: start: 20230802, end: 20230806

REACTIONS (5)
  - Drug abuse [Recovered/Resolved]
  - Suicide attempt [Recovered/Resolved]
  - Anxiety [Recovering/Resolving]
  - Hypoxia [Recovered/Resolved]
  - Toxicity to various agents [Recovered/Resolved]

NARRATIVE: CASE EVENT DATE: 20230802
